FAERS Safety Report 5660770-1 (Version None)
Quarter: 2008Q1

REPORT INFORMATION
  Report Type: 
  Country: None (occurrence: None)
  Receive Date: 20080311
  Receipt Date: 20080227
  Transmission Date: 20080703
  Serious: Yes (Other)
  Sender: FDA-Public Use
  Company Number: JP-ROCHE-530593

PATIENT
  Age: 71 Year
  Sex: Male
  Weight: 53.7 kg

DRUGS (9)
  1. METHOXY POLYETHYLENE GLYCOL-EPOETIN BETA [Suspect]
     Route: 042
     Dates: start: 20070807, end: 20071029
  2. METHOXY POLYETHYLENE GLYCOL-EPOETIN BETA [Suspect]
     Route: 042
     Dates: start: 20071030, end: 20071106
  3. ARTIST [Concomitant]
     Dates: start: 20030812
  4. DOXAZOSIN MESYLATE [Concomitant]
     Dates: start: 20030812
  5. ALLOPURINOL [Concomitant]
     Dates: start: 20030812
  6. PROTECADIN [Concomitant]
     Dates: start: 20070115
  7. MICARDIS [Concomitant]
     Dates: start: 20030812
  8. CONIEL [Concomitant]
     Dosage: DRUG REPORTED AS BENIDIPINE HYDROCHLORIDE.
     Dates: start: 20030812
  9. GLUMAL [Concomitant]
     Dosage: DOSE AND FRQUENCY NOT REPORTED, DRUG REPORTED AS ACEGLUTAMIDE ALUMINUM.
     Dates: start: 20070115

REACTIONS (1)
  - LUNG NEOPLASM MALIGNANT [None]
